FAERS Safety Report 4320920-6 (Version None)
Quarter: 2004Q1

REPORT INFORMATION
  Report Type: 
  Country: None (occurrence: None)
  Receive Date: 20040322
  Receipt Date: 20040220
  Transmission Date: 20041129
  Serious: Yes (Death)
  Sender: FDA-Public Use
  Company Number: JP-BRISTOL-MYERS SQUIBB COMPANY-12513628

PATIENT
  Age: 69 Year
  Sex: Male

DRUGS (6)
  1. PARAPLATIN [Suspect]
     Indication: NON-SMALL CELL LUNG CANCER
     Route: 042
     Dates: start: 20020828, end: 20020930
  2. TAXOTERE [Suspect]
     Indication: NON-SMALL CELL LUNG CANCER
     Route: 042
     Dates: start: 20020828, end: 20020930
  3. RADIATION THERAPY [Suspect]
     Indication: NON-SMALL CELL LUNG CANCER
     Dates: start: 20020830, end: 20021015
  4. DECADRON [Concomitant]
     Route: 042
     Dates: start: 20020828, end: 20020930
  5. SEROTONE [Concomitant]
     Route: 042
     Dates: start: 20020828, end: 20020930
  6. PRIMPERAN INJ [Concomitant]
     Route: 042
     Dates: start: 20020828, end: 20020930

REACTIONS (2)
  - RADIATION PNEUMONITIS [None]
  - RESPIRATORY FAILURE [None]
